FAERS Safety Report 13859621 (Version 2)
Quarter: 2017Q3

REPORT INFORMATION
  Report Type: Spontaneous
  Country: US (occurrence: US)
  Receive Date: 20170811
  Receipt Date: 20170915
  Transmission Date: 20171127
  Serious: No
  Sender: FDA-Public Use
  Company Number: US-PFIZER INC-2017347318

PATIENT
  Age: 4 Year
  Sex: Female
  Weight: 16.78 kg

DRUGS (1)
  1. DEPO-PROVERA [Suspect]
     Active Substance: MEDROXYPROGESTERONE ACETATE
     Dosage: 150MG
     Route: 030
     Dates: start: 20170516

REACTIONS (4)
  - Injection site pain [Unknown]
  - Gait disturbance [Recovered/Resolved]
  - Limb discomfort [Unknown]
  - Wrong drug administered [Unknown]

NARRATIVE: CASE EVENT DATE: 20170516
